FAERS Safety Report 11836823 (Version 2)
Quarter: 2015Q4

REPORT INFORMATION
  Report Type: Spontaneous
  Country: US (occurrence: US)
  Receive Date: 20151215
  Receipt Date: 20151224
  Transmission Date: 20160305
  Serious: Yes (Hospitalization)
  Sender: FDA-Public Use
  Company Number: US-HORIZON-ACT-0217-2015

PATIENT
  Age: 27 Year
  Sex: Male

DRUGS (1)
  1. ACTIMMUNE [Suspect]
     Active Substance: INTERFERON GAMMA-1B
     Indication: CHRONIC GRANULOMATOUS DISEASE
     Dosage: 75 ?G TIW

REACTIONS (10)
  - Haemoptysis [Unknown]
  - Chronic kidney disease [Not Recovered/Not Resolved]
  - Hypocalcaemia [Not Recovered/Not Resolved]
  - Renal disorder [Not Recovered/Not Resolved]
  - Sepsis [Unknown]
  - Azotaemia [Not Recovered/Not Resolved]
  - Upper respiratory tract infection [Unknown]
  - Vitamin D deficiency [Not Recovered/Not Resolved]
  - Leukocytosis [Not Recovered/Not Resolved]
  - Tooth abscess [Not Recovered/Not Resolved]

NARRATIVE: CASE EVENT DATE: 201511
